FAERS Safety Report 12668522 (Version 3)
Quarter: 2016Q3

REPORT INFORMATION
  Report Type: Spontaneous
  Country: US (occurrence: US)
  Receive Date: 20160819
  Receipt Date: 20160902
  Transmission Date: 20161109
  Serious: No
  Sender: FDA-Public Use
  Company Number: US-009507513-1607USA011832

PATIENT
  Age: 59 Year
  Sex: Female
  Weight: 68.48 kg

DRUGS (2)
  1. STERILE DILUENT [Suspect]
     Active Substance: WATER
     Indication: PROPHYLAXIS
     Dosage: UNK
     Route: 058
     Dates: start: 20160721
  2. ZOSTAVAX [Suspect]
     Active Substance: VARICELLA-ZOSTER VIRUS STRAIN OKA/MERCK LIVE ANTIGEN
     Indication: PROPHYLAXIS
     Dosage: 1 DF
     Route: 058
     Dates: start: 20160721, end: 20160721

REACTIONS (3)
  - Hypersensitivity [Unknown]
  - Blister [Unknown]
  - Erythema [Unknown]

NARRATIVE: CASE EVENT DATE: 20160722
